FAERS Safety Report 25369548 (Version 1)
Quarter: 2025Q2

REPORT INFORMATION
  Report Type: Spontaneous
  Country: GB (occurrence: GB)
  Receive Date: 20250528
  Receipt Date: 20250528
  Transmission Date: 20250717
  Serious: Yes (Other)
  Sender: TEVA
  Company Number: None

PATIENT
  Age: 41 Year
  Sex: Male
  Weight: 70 kg

DRUGS (2)
  1. BISOPROLOL [Suspect]
     Active Substance: BISOPROLOL
     Indication: Sudden cardiac death
     Dosage: DAILY DOSE: 2.5MG IN THE MORNING
     Route: 065
     Dates: start: 20111017
  2. LORATADINE [Concomitant]
     Active Substance: LORATADINE
     Indication: Eczema
     Dates: start: 20111017

REACTIONS (1)
  - Breath alcohol test [Unknown]

NARRATIVE: CASE EVENT DATE: 20241208
